FAERS Safety Report 21308255 (Version 1)
Quarter: 2022Q3

REPORT INFORMATION
  Report Type: Report from Study
  Country: US (occurrence: US)
  Receive Date: 20220908
  Receipt Date: 20220908
  Transmission Date: 20221026
  Serious: Yes (Other)
  Sender: FDA-Public Use
  Company Number: US-OTSUKA-2022_040614

PATIENT
  Sex: Male

DRUGS (1)
  1. CEDAZURIDINE\DECITABINE [Suspect]
     Active Substance: CEDAZURIDINE\DECITABINE
     Indication: Myelodysplastic syndrome
     Dosage: 1 DF, QD (1-5 DAYS) OF EVERY 28-DAY CYCLE
     Route: 048
     Dates: start: 20220719

REACTIONS (5)
  - Full blood count abnormal [Unknown]
  - Abdominal discomfort [Unknown]
  - Dyspnoea exertional [Unknown]
  - Fatigue [Unknown]
  - Asthenia [Unknown]
